FAERS Safety Report 9185720 (Version 1)
Quarter: 2013Q1

REPORT INFORMATION
  Report Type: Spontaneous
  Country: FR (occurrence: None)
  Receive Date: 20130321
  Receipt Date: 20130321
  Transmission Date: 20140127
  Serious: Yes (Hospitalization)
  Sender: FDA-Public Use
  Company Number: INT_00233_2013

PATIENT
  Age: 84 Year
  Sex: Female

DRUGS (7)
  1. CEFTRIAXONE (CEFTRIAXONE) [Suspect]
     Indication: LUNG DISORDER
     Dates: start: 20130126, end: 20130127
  2. CEFTRIAXONE (CEFTRIAXONE) [Suspect]
     Dates: start: 20130126, end: 20130127
  3. CEFTRIAXONE (CEFTRIAXONE) [Suspect]
     Dates: start: 20130126, end: 20130127
  4. CEFTRIAXONE (CEFTRIAXONE) [Suspect]
     Dates: start: 20130126, end: 20130127
  5. VOLUVEN [Suspect]
     Indication: LUNG DISORDER
     Dates: start: 20130126, end: 20130127
  6. CALCIPARIN [Suspect]
     Indication: PRODUCT USED FOR UNKNOWN INDICATION
  7. VITAMIN K1 [Suspect]
     Indication: PRODUCT USED FOR UNKNOWN INDICATION

REACTIONS (3)
  - Generalised erythema [None]
  - Pruritus [None]
  - Anaemia [None]
